FAERS Safety Report 8985434 (Version 3)
Quarter: 2013Q1

REPORT INFORMATION
  Report Type: Spontaneous
  Country: JP (occurrence: JP)
  Receive Date: 20121226
  Receipt Date: 20130219
  Transmission Date: 20140127
  Serious: Yes (Life-Threatening, Hospitalization, Other)
  Sender: FDA-Public Use
  Company Number: JP-PFIZER INC-2012322246

PATIENT
  Age: 76 Year
  Sex: Female
  Weight: 45 kg

DRUGS (36)
  1. LINEZOLID [Suspect]
     Indication: STAPHYLOCOCCAL BACTERAEMIA
     Dosage: 600 MG, 2X/DAY
     Route: 048
     Dates: start: 20100830, end: 20100910
  2. LINEZOLID [Suspect]
     Dosage: 600 MG, 2X/DAY
     Route: 048
     Dates: start: 20101025, end: 20101118
  3. LINEZOLID [Suspect]
     Dosage: 600 MG, 2X/DAY
     Route: 048
     Dates: start: 20110113, end: 20110131
  4. VANCOMYCIN HCL [Suspect]
     Dosage: 0.5 G AFTER HEMODIALYSIS 3 TIMES A WEEK
     Dates: start: 20100811, end: 20100825
  5. VANCOMYCIN HCL [Suspect]
     Dosage: 0.5 G AFTER HEMODIALYSIS 3 TIMES A WEEK
     Dates: start: 20100830, end: 20100830
  6. VANCOMYCIN HCL [Suspect]
     Dosage: 0.5 G AFTER HEMODIALYSIS 3 TIMES A WEEK
     Dates: start: 20101007, end: 20101022
  7. VANCOMYCIN HCL [Suspect]
     Dosage: 0.5 G AFTER HEMODIALYSIS 3 TIMES A WEEK
     Dates: start: 20101122, end: 20101213
  8. VANCOMYCIN HCL [Suspect]
     Dosage: 0.5 G AFTER HEMODIALYSIS 3 TIMES A WEEK
     Dates: start: 20101227, end: 20110112
  9. VANCOMYCIN HCL [Suspect]
     Dosage: 0.5 G AFTER HEMODIALYSIS 3 TIMES A WEEK
     Dates: start: 20110207, end: 20110209
  10. VANCOMYCIN HCL [Suspect]
     Dosage: 0.5 G AFTER HEMODIALYSIS 3 TIMES A WEEK
     Dates: start: 20110214, end: 20110221
  11. PIPERACILLIN/TAZOBACTAM [Concomitant]
     Dosage: UNK
     Dates: start: 20100914, end: 20100920
  12. PIPERACILLIN/TAZOBACTAM [Concomitant]
     Dosage: UNK
     Dates: start: 20101007, end: 20101014
  13. PIPERACILLIN/TAZOBACTAM [Concomitant]
     Dosage: UNK
     Dates: start: 20110207, end: 20110209
  14. DORIPENEM [Concomitant]
     Dosage: UNK
     Dates: start: 20100806, end: 20100818
  15. DORIPENEM [Concomitant]
     Dosage: UNK
     Dates: start: 20101019, end: 20101101
  16. DORIPENEM [Concomitant]
     Dosage: UNK
     Dates: start: 20101124, end: 20101201
  17. CEFEPIME [Concomitant]
     Dosage: UNK
     Dates: start: 20101102, end: 20101115
  18. CEFTAZIDIME [Concomitant]
     Dosage: UNK
     Dates: start: 20101227, end: 20110106
  19. CEFOTIAM [Concomitant]
     Dosage: UNK
     Dates: start: 20100819, end: 20100819
  20. THYRADIN S [Concomitant]
     Dosage: 100 UG, UNK
     Route: 048
  21. ALFAROL [Concomitant]
     Dosage: 0.25 UG, UNK
     Route: 048
  22. WARFARIN [Concomitant]
     Dosage: 2 MG, UNK
     Route: 048
  23. WARFARIN [Concomitant]
     Dosage: 0.5 MG, 1X/DAY
     Route: 048
  24. RIFADINE [Concomitant]
     Dosage: 150 MG, 1X/DAY
     Route: 048
     Dates: start: 20110302
  25. TOWARAT [Concomitant]
     Dosage: 20 MG, 2X/DAY
     Route: 048
  26. NORVASC [Concomitant]
     Dosage: 10 MG, UNK
     Route: 048
  27. BAYASPIRIN [Concomitant]
     Dosage: 100 MG, UNK
     Route: 048
  28. LIVALO [Concomitant]
     Dosage: 1 MG, UNK
     Route: 048
  29. PROTECADIN [Concomitant]
     Dosage: 10 MG, UNK
     Route: 048
  30. REMITCH [Concomitant]
     Dosage: 5 UG, UNK
     Route: 048
  31. PLAVIX [Concomitant]
     Dosage: 75 MG, UNK
     Route: 048
  32. CARDENALIN [Concomitant]
     Dosage: 2 MG, 1X/DAY
     Route: 048
  33. AMOBAN [Concomitant]
     Dosage: 7.5 MG, UNK
     Route: 048
  34. SENNOSIDE A [Concomitant]
     Dosage: 24 MG, 1X/DAY
     Route: 048
  35. ROHIPNOL [Concomitant]
     Indication: INSOMNIA
     Dosage: 1 MG, AS NEEDED
     Route: 048
  36. CRAVIT [Concomitant]
     Dosage: 1 GTT 4X/DAY TO BOTH EYES
     Route: 047

REACTIONS (8)
  - Arterial injury [Recovering/Resolving]
  - Shock haemorrhagic [Recovered/Resolved]
  - Drug resistance [Recovering/Resolving]
  - Staphylococcal bacteraemia [Recovering/Resolving]
  - Device related infection [Recovering/Resolving]
  - Iliac artery occlusion [Recovering/Resolving]
  - Carotid artery occlusion [Recovering/Resolving]
  - Systemic candida [Recovering/Resolving]
